FAERS Safety Report 8889821 (Version 1)
Quarter: 2012Q4

REPORT INFORMATION
  Report Type: 
  Country: US (occurrence: US)
  Receive Date: 20121107
  Receipt Date: 20121107
  Transmission Date: 20130627
  Serious: Yes (Hospitalization)
  Sender: FDA-Public Use
  Company Number: US-ACTELION-A-NJ2012-73849

PATIENT
  Age: 60 Year
  Sex: Female

DRUGS (2)
  1. TRACLEER [Suspect]
     Indication: PULMONARY ARTERIAL HYPERTENSION
     Dosage: UNK
     Route: 048
     Dates: start: 200807
  2. FLOLAN [Concomitant]

REACTIONS (4)
  - Procedural complication [Unknown]
  - Catheterisation cardiac [Unknown]
  - Pulmonary arterial hypertension [Unknown]
  - Pulmonary arterial pressure increased [Unknown]
